FAERS Safety Report 5474309-7 (Version None)
Quarter: 2007Q4

REPORT INFORMATION
  Report Type: 
  Country: None (occurrence: None)
  Receive Date: 20071002
  Receipt Date: 20070723
  Transmission Date: 20080405
  Serious: No
  Sender: FDA-Public Use
  Company Number: US-ASTRAZENECA-2007UW17816

PATIENT
  Sex: Female

DRUGS (3)
  1. ARIMIDEX [Suspect]
     Indication: BREAST CANCER FEMALE
     Route: 048
     Dates: start: 20030301, end: 20070401
  2. VITAMINS [Concomitant]
  3. ASPIRIN [Concomitant]

REACTIONS (2)
  - ILL-DEFINED DISORDER [None]
  - OEDEMA PERIPHERAL [None]
